FAERS Safety Report 19954046 (Version 15)
Quarter: 2023Q1

REPORT INFORMATION
  Report Type: Report from Study
  Country: US (occurrence: US)
  Receive Date: 20211014
  Receipt Date: 20230217
  Transmission Date: 20230417
  Serious: Yes (Hospitalization, Disabling, Other)
  Sender: FDA-Public Use
  Company Number: US-NOVARTISPH-NVSC2021US214871

PATIENT
  Age: 4 Year
  Sex: Female
  Weight: 16.8 kg

DRUGS (62)
  1. TRAMETINIB [Suspect]
     Active Substance: TRAMETINIB
     Indication: Neurofibromatosis
     Dosage: 0.45 MG, ORAL LIQUID QD
     Route: 048
     Dates: start: 20171130, end: 20221223
  2. TRAMETINIB [Suspect]
     Active Substance: TRAMETINIB
     Dosage: 0.45 MG, QD
     Route: 048
     Dates: start: 20180427, end: 20230113
  3. ACETAMINOPHEN [Concomitant]
     Active Substance: ACETAMINOPHEN
     Indication: Product used for unknown indication
     Dosage: 15 MG/KG, Q6H (PRN)
     Route: 065
  4. ACETAMINOPHEN [Concomitant]
     Active Substance: ACETAMINOPHEN
     Dosage: UNK
     Route: 065
  5. ALBUTEROL [Concomitant]
     Active Substance: ALBUTEROL
     Indication: Product used for unknown indication
     Dosage: 2.5 MG, Q4H (PRN DAILY AT 1800) NEBULIZATION
     Route: 065
     Dates: start: 20210919
  6. CETIRIZINE [Concomitant]
     Active Substance: CETIRIZINE HYDROCHLORIDE
     Indication: Product used for unknown indication
     Dosage: 2.5 MG, QD (G-TUBE)
     Route: 065
  7. CLINDAMYCIN PALMITATE HYDROCHLORIDE [Concomitant]
     Active Substance: CLINDAMYCIN PALMITATE HYDROCHLORIDE
     Indication: Product used for unknown indication
     Dosage: 40 MG/KG, Q8H (PER DAY)
     Route: 065
  8. DIPHENHYDRAMINE [Concomitant]
     Active Substance: DIPHENHYDRAMINE
     Indication: Product used for unknown indication
     Dosage: 12.5 MG, Q6H (PRN)
     Route: 048
  9. DIPHENHYDRAMINE [Concomitant]
     Active Substance: DIPHENHYDRAMINE
     Dosage: UNK (12.5 MG/5 ML ORAL LIQUID)
     Route: 065
  10. DIPHENHYDRAMINE [Concomitant]
     Active Substance: DIPHENHYDRAMINE
     Dosage: 12.5 MG
     Route: 042
  11. FAMOTIDINE [Concomitant]
     Active Substance: FAMOTIDINE
     Indication: Product used for unknown indication
     Dosage: 7.5 MG, Q12H (SCH)
     Route: 065
     Dates: start: 20210919
  12. FAMOTIDINE [Concomitant]
     Active Substance: FAMOTIDINE
     Dosage: 10 MG
     Route: 042
  13. GABAPENTIN [Concomitant]
     Active Substance: GABAPENTIN
     Indication: Product used for unknown indication
     Dosage: 250 MG, Q8H SCH
     Route: 065
  14. GABAPENTIN [Concomitant]
     Active Substance: GABAPENTIN
     Dosage: 200 MG, BID (J-TUBE)
     Route: 065
  15. GABAPENTIN [Concomitant]
     Active Substance: GABAPENTIN
     Dosage: 400 MG, Q24H (J-TUBE) (SCH)
     Route: 065
  16. GLYCERIN [Concomitant]
     Active Substance: GLYCERIN
     Indication: Product used for unknown indication
     Dosage: 1 ML, Q12H PRN (AS NEEDED (NO BOWEL MOVEMENT))
     Route: 054
  17. GLYCERIN [Concomitant]
     Active Substance: GLYCERIN
     Dosage: 2.7 ML, QD (PRN) (PEDIATRIC)
     Route: 054
  18. LACTOBACILLUS RHAMNOSUS [Concomitant]
     Active Substance: LACTOBACILLUS RHAMNOSUS
     Indication: Product used for unknown indication
     Dosage: 1-EACH, QD (G-TUBE)
     Route: 065
     Dates: start: 20210919
  19. LEVETIRACETAM [Concomitant]
     Active Substance: LEVETIRACETAM
     Indication: Product used for unknown indication
     Dosage: 250 MG, BID (J-TUBE)
     Route: 065
  20. LEVETIRACETAM [Concomitant]
     Active Substance: LEVETIRACETAM
     Dosage: 250 MG, ONCE/SINGLE (J-TUBE)
     Route: 065
  21. LEVETIRACETAM [Concomitant]
     Active Substance: LEVETIRACETAM
     Dosage: 250 MG
     Route: 042
  22. MELATONIN [Concomitant]
     Active Substance: MELATONIN
     Indication: Product used for unknown indication
     Dosage: 6 MG, PRN NIGHTLY
     Route: 065
  23. MELATONIN [Concomitant]
     Active Substance: MELATONIN
     Dosage: UNK (6 ML (6 MG TOTAL) BY G-TUBE ROUTE AT BEDTIME AS NEEDED (SLEEP))
     Route: 065
  24. MENTHOL;ZINC [Concomitant]
     Indication: Product used for unknown indication
     Dosage: UNK (1 APPLICATION 4X DAILY, PRN)
     Route: 061
  25. MUPIROCIN [Concomitant]
     Active Substance: MUPIROCIN
     Indication: Product used for unknown indication
     Dosage: UNK, TID (APPLICATION)
     Route: 061
  26. SODIUM CHLORIDE [Concomitant]
     Active Substance: SODIUM CHLORIDE
     Indication: Product used for unknown indication
     Dosage: 250 ML, PRN
     Route: 042
  27. SODIUM CHLORIDE [Concomitant]
     Active Substance: SODIUM CHLORIDE
     Dosage: 50 ML, PRN
     Route: 042
  28. SODIUM CHLORIDE [Concomitant]
     Active Substance: SODIUM CHLORIDE
     Dosage: 4 ML, PRN (NIGHTLY) (STRENGTH: 3 %)
     Route: 065
  29. NYSTATIN [Concomitant]
     Active Substance: NYSTATIN
     Indication: Product used for unknown indication
     Dosage: UNK, BID
     Route: 061
  30. POLYETHYLENE GLYCOL [Concomitant]
     Active Substance: POLYETHYLENE GLYCOL
     Indication: Product used for unknown indication
     Dosage: 17 G, QD
     Route: 048
     Dates: start: 20210919
  31. SIMETHICONE (DIMETHICONE) [Concomitant]
     Active Substance: DIMETHICONE
     Indication: Flatulence
     Dosage: 40 MG, PRN ( 4X DAILY)
     Route: 065
  32. SIMETHICONE (DIMETHICONE) [Concomitant]
     Active Substance: DIMETHICONE
     Dosage: UNK (40 MG/0.6 ML ORAL DROPS,SUSPENSION 0.6 ML PER GTUBE 4 TIMES A DAY AS)
     Route: 065
  33. SODIUM PHOSPHATES [Concomitant]
     Active Substance: SODIUM PHOSPHATE, DIBASIC, ANHYDROUS\SODIUM PHOSPHATE, DIBASIC, HEPTAHYDRATE\SODIUM PHOSPHATE, MONOB
     Indication: Product used for unknown indication
     Dosage: 33 ML, QD PRN
     Route: 054
  34. TOBRAMYCIN [Concomitant]
     Active Substance: TOBRAMYCIN
     Indication: Product used for unknown indication
     Dosage: 80 MG, Q12H (NEBULIZATION)
     Route: 065
     Dates: start: 20210919
  35. TRAMETINIB DIMETHYL SULFOXIDE [Concomitant]
     Active Substance: TRAMETINIB DIMETHYL SULFOXIDE
     Indication: Product used for unknown indication
     Dosage: 0.5 MG, QD AT 1800
     Route: 048
  36. TRIAMCINOLONE [Concomitant]
     Active Substance: TRIAMCINOLONE
     Indication: Product used for unknown indication
     Dosage: UNK, BID
     Route: 061
  37. WHITE PETROLATUM [Concomitant]
     Active Substance: PETROLATUM
     Indication: Product used for unknown indication
     Dosage: 1 APPLICATION, TID
     Route: 061
  38. WHITE PETROLATUM [Concomitant]
     Active Substance: PETROLATUM
     Dosage: 1 APPLICATION, QD
     Route: 061
  39. MACRODANTIN [Concomitant]
     Active Substance: NITROFURANTOIN
     Indication: Product used for unknown indication
     Dosage: UNK (DISSOLVE 1 CAPSULE IN 5 ML OF WATER, THEN ADMINISTER VIA G-T)
     Route: 065
  40. MYCOSTATIN [Concomitant]
     Active Substance: NYSTATIN
     Indication: Product used for unknown indication
     Dosage: UNK (TOPICAL POWDER)
     Route: 061
  41. SENNA [Concomitant]
     Active Substance: SENNA LEAF\SENNOSIDES\SENNOSIDES A AND B
     Indication: Product used for unknown indication
     Dosage: UNK (8.6-50 MG TAKE 1 TABLET BY G-TUBE ROUTE 2 TIMES A DAY 60 TABLET 3)
     Route: 065
  42. TYLENOL [Concomitant]
     Active Substance: ACETAMINOPHEN
     Indication: Product used for unknown indication
     Dosage: UNK (160 MG/5 ML (5 ML) ORAL SUSPENSION)
     Route: 048
  43. ZYRTEC [Concomitant]
     Active Substance: CETIRIZINE HYDROCHLORIDE
     Indication: Product used for unknown indication
     Dosage: 2.5 ML, QD ((2.5 MG TOTAL) BY G-TUBE ROUTE)
     Route: 065
  44. PEPCID [Concomitant]
     Active Substance: FAMOTIDINE
     Indication: Product used for unknown indication
     Dosage: UNK (20 MG/2.5 ML (8 MG/ML)
     Route: 048
  45. HYDROCORTISONE [Concomitant]
     Active Substance: HYDROCORTISONE
     Indication: Product used for unknown indication
     Dosage: UNK, BID
     Route: 061
  46. WESTCORT [Concomitant]
     Active Substance: HYDROCORTISONE VALERATE
     Indication: Product used for unknown indication
     Dosage: UNK, BID (APPLY TO FACE TWICE A DAY AS NEEDED)
     Route: 065
  47. ADVIL [Concomitant]
     Active Substance: IBUPROFEN
     Indication: Product used for unknown indication
     Dosage: UNK (100 MG/5 ML ORAL SUSPENSION)
     Route: 048
  48. MOTRIN [Concomitant]
     Active Substance: IBUPROFEN
     Indication: Product used for unknown indication
     Dosage: UNK (100 MG/5 ML ORAL SUSPENSION)
     Route: 048
  49. KEPPRA [Concomitant]
     Active Substance: LEVETIRACETAM
     Indication: Product used for unknown indication
     Dosage: 2.5 ML, BID (250 MG TOTAL) BY G-TUBE ROUTE)
     Route: 048
  50. ZINC OXIDE [Concomitant]
     Active Substance: ZINC OXIDE
     Indication: Product used for unknown indication
     Dosage: 56.7 G (APPLY 1 APPLICATION TOPICALLY AS NEEDED FOR IRRITATION)
     Route: 065
  51. CALMOSEPTINE [Concomitant]
     Active Substance: MENTHOL\ZINC OXIDE
     Indication: Product used for unknown indication
     Dosage: UNK (APPLY 1 APPLICATION TOPICALLY 4 TIMES A DAY AS NEEDED (GTUBE SITE))
     Route: 065
  52. BACTROBAN [Concomitant]
     Active Substance: MUPIROCIN\MUPIROCIN CALCIUM
     Indication: Product used for unknown indication
     Dosage: UNK (APPLY 1 APPLICATION TOPICALLY 3 TIMES A DAY. TO AFFECTED WOUND AREAS OF ARMS AND LEGS)
     Route: 065
  53. MOMETASONE [Concomitant]
     Active Substance: MOMETASONE
     Indication: Product used for unknown indication
     Dosage: UNK, QD
     Route: 061
  54. SODIUM CHLORIDE [Concomitant]
     Active Substance: SODIUM CHLORIDE
     Indication: Product used for unknown indication
     Dosage: 4 ML, BID (NIGHTLY) (NEBULIZATION)
     Route: 065
  55. SODIUM CHLORIDE [Concomitant]
     Active Substance: SODIUM CHLORIDE
     Dosage: 250 ML  (0.9 %)
     Route: 042
  56. SODIUM CHLORIDE [Concomitant]
     Active Substance: SODIUM CHLORIDE
     Dosage: 50 ML  (0.9 %)
     Route: 042
  57. AMOXICILLIN\CLAVULANATE POTASSIUM [Concomitant]
     Active Substance: AMOXICILLIN\CLAVULANATE POTASSIUM
     Indication: Product used for unknown indication
     Dosage: 72 MG, ONCE/SINGLE (J-TUBE)
     Route: 065
  58. AMOXICILLIN\CLAVULANATE POTASSIUM [Concomitant]
     Active Substance: AMOXICILLIN\CLAVULANATE POTASSIUM
     Dosage: 5 MG/KG, Q12H (J-TUBE)
     Route: 065
  59. SUCRALFATE [Concomitant]
     Active Substance: SUCRALFATE
     Indication: Product used for unknown indication
     Dosage: 0.3 G, Q6H (G-TUBE)
     Route: 065
  60. KETOCONAZOLE [Concomitant]
     Active Substance: KETOCONAZOLE
     Indication: Product used for unknown indication
     Dosage: 1 APPLICATION, BID
     Route: 061
  61. MORPHINE [Concomitant]
     Active Substance: MORPHINE
     Indication: Product used for unknown indication
     Dosage: 0.05 MG/KG (DOSING WEIGHT)
     Route: 042
  62. PANTOPRAZOLE [Concomitant]
     Active Substance: PANTOPRAZOLE
     Indication: Product used for unknown indication
     Dosage: 1 MG/KG, Q24H (SCH)
     Route: 042

REACTIONS (22)
  - Intestinal obstruction [Unknown]
  - Abdominal distension [Recovering/Resolving]
  - Tachycardia [Not Recovered/Not Resolved]
  - Nasal congestion [Recovering/Resolving]
  - Pyrexia [Recovered/Resolved]
  - Gastric haemorrhage [Recovered/Resolved with Sequelae]
  - Diarrhoea [Recovering/Resolving]
  - Enterococcal infection [Not Recovered/Not Resolved]
  - Pyrexia [Not Recovered/Not Resolved]
  - Device dislocation [Unknown]
  - Chronic respiratory failure [Unknown]
  - Rash [Not Recovered/Not Resolved]
  - Feeding intolerance [Recovered/Resolved]
  - Abdominal pain [Unknown]
  - Sepsis [Recovered/Resolved]
  - Gastrostomy tube site complication [Recovered/Resolved]
  - Drug-induced liver injury [Unknown]
  - Pneumatosis intestinalis [Unknown]
  - Gastrointestinal motility disorder [Unknown]
  - Gastrointestinal pain [Unknown]
  - Feeling abnormal [Unknown]
  - Urinary tract infection [Unknown]

NARRATIVE: CASE EVENT DATE: 20201106
